FAERS Safety Report 5411835-0 (Version None)
Quarter: 2007Q3

REPORT INFORMATION
  Report Type: 
  Country: None (occurrence: None)
  Receive Date: 20070713
  Receipt Date: 20070319
  Transmission Date: 20080115
  Serious: No
  Sender: FDA-Public Use
  Company Number: 2007SP001005

PATIENT
  Age: 58 Year
  Sex: Male
  Weight: 81.6475 kg

DRUGS (3)
  1. LUNESTA [Suspect]
     Indication: INSOMNIA
     Dosage: 3 MG;PRN;ORAL ; 4 MG;PRN;ORAL
     Route: 048
     Dates: end: 20070315
  2. LUNESTA [Suspect]
     Indication: INSOMNIA
     Dosage: 3 MG;PRN;ORAL ; 4 MG;PRN;ORAL
     Route: 048
     Dates: start: 20060101
  3. NORCO [Concomitant]

REACTIONS (5)
  - DRUG DEPENDENCE [None]
  - FACE INJURY [None]
  - HEAD INJURY [None]
  - HEADACHE [None]
  - INSOMNIA [None]
